FAERS Safety Report 7655394-0 (Version None)
Quarter: 2011Q3

REPORT INFORMATION
  Report Type: 
  Country: None (occurrence: None)
  Receive Date: 20110804
  Receipt Date: 20110722
  Transmission Date: 20111222
  Serious: Yes (Other)
  Sender: FDA-Public Use
  Company Number: BR-JNJFOC-20110709856

PATIENT

DRUGS (2)
  1. INFLIXIMAB, RECOMBINANT [Suspect]
     Indication: PSORIASIS
     Dosage: 4 DOSES
     Route: 042
  2. INFLIXIMAB, RECOMBINANT [Suspect]
     Dosage: WEEKS 0 2 AND 6 (INDUCTION PHASE) FOLLOWED BY MAINTENANCE EVERY 8 WEEKS
     Route: 042

REACTIONS (3)
  - DIZZINESS [None]
  - RENAL COLIC [None]
  - INFUSION RELATED REACTION [None]
